FAERS Safety Report 5658947-4 (Version None)
Quarter: 2008Q1

REPORT INFORMATION
  Report Type: 
  Country: None (occurrence: None)
  Receive Date: 20080310
  Receipt Date: 20070621
  Transmission Date: 20080703
  Serious: No
  Sender: FDA-Public Use
  Company Number: US-BAYER-200711424BCC

PATIENT
  Age: 67 Year
  Sex: Female
  Weight: 70 kg

DRUGS (4)
  1. ALEVE [Suspect]
     Indication: PAIN
     Route: 048
     Dates: start: 20061201
  2. PREMPRO [Concomitant]
  3. PREVACID [Concomitant]
  4. SYNTHROID [Concomitant]

REACTIONS (2)
  - GAIT DISTURBANCE [None]
  - JOINT SWELLING [None]
